FAERS Safety Report 24071200 (Version 5)
Quarter: 2024Q3

REPORT INFORMATION
  Report Type: Report from Study
  Country: MY (occurrence: MY)
  Receive Date: 20240710
  Receipt Date: 20240710
  Transmission Date: 20241016
  Serious: No
  Sender: ROCHE
  Company Number: MY-ROCHE-3506367

PATIENT
  Sex: Male
  Weight: 17.0 kg

DRUGS (4)
  1. RISDIPLAM [Suspect]
     Active Substance: RISDIPLAM
     Indication: Spinal muscular atrophy
     Dosage: STRENGTH: 0.75 MG/ML
     Route: 048
  2. RISDIPLAM [Suspect]
     Active Substance: RISDIPLAM
  3. RISDIPLAM [Suspect]
     Active Substance: RISDIPLAM
  4. RISDIPLAM [Suspect]
     Active Substance: RISDIPLAM

REACTIONS (2)
  - Drug ineffective [Unknown]
  - No adverse event [Unknown]
